FAERS Safety Report 9781805 (Version 1)
Quarter: 2013Q4

REPORT INFORMATION
  Report Type: Spontaneous
  Country: US (occurrence: US)
  Receive Date: 20131225
  Receipt Date: 20131225
  Transmission Date: 20140711
  Serious: Yes (Hospitalization, Other)
  Sender: FDA-Public Use
  Company Number: US-BIOGENIDEC-2013BI122878

PATIENT
  Age: 24 Year
  Sex: Male

DRUGS (5)
  1. TYSABRI [Suspect]
     Indication: MULTIPLE SCLEROSIS
     Route: 042
     Dates: start: 20130219
  2. AMPYRA [Concomitant]
     Indication: GAIT DISTURBANCE
     Route: 048
     Dates: start: 20131009, end: 20131009
  3. GABAPENTIN [Concomitant]
  4. BACLOFEN [Concomitant]
  5. TIZANIDINE [Concomitant]

REACTIONS (2)
  - Convulsion [Unknown]
  - Memory impairment [Unknown]
